FAERS Safety Report 25810022 (Version 1)
Quarter: 2025Q3

REPORT INFORMATION
  Report Type: Spontaneous
  Country: US (occurrence: US)
  Receive Date: 20250917
  Receipt Date: 20250917
  Transmission Date: 20251021
  Serious: No
  Sender: BRISTOL-MYERS SQUIBB COMPANY
  Company Number: US-BRISTOL-MYERS SQUIBB COMPANY-2025-125872

PATIENT
  Age: 17 Year
  Sex: Male

DRUGS (1)
  1. COBENFY [Suspect]
     Active Substance: TROSPIUM CHLORIDE\XANOMELINE
     Indication: Autism spectrum disorder
     Dosage: DOSE: 100/20MG; STRENGTH: 100/20MG

REACTIONS (3)
  - Anal incontinence [Unknown]
  - Aggression [Unknown]
  - Off label use [Unknown]
